FAERS Safety Report 4437287-5 (Version None)
Quarter: 2004Q3

REPORT INFORMATION
  Report Type: 
  Country: None (occurrence: None)
  Receive Date: 20040827
  Receipt Date: 20040812
  Transmission Date: 20050211
  Serious: Yes (Other)
  Sender: FDA-Public Use
  Company Number: US-SHR-04-024829

PATIENT
  Age: 18 Year
  Sex: Female
  Weight: 45.4 kg

DRUGS (1)
  1. YASMIN [Suspect]
     Indication: ORAL CONTRACEPTION
     Dosage: 1 TAB (S), 1X/DAY, ORAL
     Route: 048
     Dates: start: 20040101, end: 20040218

REACTIONS (5)
  - ANTIPHOSPHOLIPID SYNDROME [None]
  - DEEP VEIN THROMBOSIS [None]
  - INTERNATIONAL NORMALISED RATIO DECREASED [None]
  - PROTEIN S DECREASED [None]
  - SYSTEMIC LUPUS ERYTHEMATOSUS [None]
